FAERS Safety Report 4772532-8 (Version None)
Quarter: 2005Q3

REPORT INFORMATION
  Report Type: 
  Country: None (occurrence: None)
  Receive Date: 20050915
  Receipt Date: 20050915
  Transmission Date: 20060218
  Serious: Yes (Other)
  Sender: FDA-Public Use
  Company Number: None

PATIENT
  Age: 64 Year
  Sex: Male
  Weight: 81.4 kg

DRUGS (2)
  1. VANCOMYCIN [Suspect]
     Indication: INTERVERTEBRAL DISCITIS
     Dosage: 1000MG    M,W,F AFTER DIALYS    IV DRIP
     Route: 041
     Dates: start: 20050823, end: 20050905
  2. VANCOMYCIN [Suspect]
     Indication: STAPHYLOCOCCAL INFECTION
     Dosage: 1000MG    M,W,F AFTER DIALYS    IV DRIP
     Route: 041
     Dates: start: 20050823, end: 20050905

REACTIONS (1)
  - DEAFNESS [None]
